FAERS Safety Report 6434851-9 (Version None)
Quarter: 2009Q4

REPORT INFORMATION
  Report Type: 
  Country: None (occurrence: None)
  Receive Date: 20091109
  Receipt Date: 20091109
  Transmission Date: 20100525
  Serious: No
  Sender: FDA-Public Use
  Company Number: None

PATIENT
  Age: 59 Year
  Sex: Female
  Weight: 58.0604 kg

DRUGS (1)
  1. ACTONEL [Suspect]
     Indication: OSTEOPENIA
     Dosage: 35MG ONCE/WEEK
     Dates: start: 20090115, end: 20091107

REACTIONS (7)
  - ARTHRALGIA [None]
  - BACK PAIN [None]
  - CHEST PAIN [None]
  - FATIGUE [None]
  - GAIT DISTURBANCE [None]
  - MYALGIA [None]
  - NEUROPATHY PERIPHERAL [None]
